FAERS Safety Report 13109235 (Version 2)
Quarter: 2017Q2

REPORT INFORMATION
  Report Type: Spontaneous
  Country: US (occurrence: US)
  Receive Date: 20170112
  Receipt Date: 20170518
  Transmission Date: 20170830
  Serious: Yes (Other)
  Sender: FDA-Public Use
  Company Number: US-TEVA-728675ACC

PATIENT
  Age: 35 Year
  Sex: Female
  Weight: 68.1 kg

DRUGS (3)
  1. LANTUS [Concomitant]
     Active Substance: INSULIN GLARGINE
  2. HUMALOG [Concomitant]
     Active Substance: INSULIN LISPRO
     Indication: DIABETES MELLITUS
  3. PARAGARD T 380A [Suspect]
     Active Substance: COPPER
     Indication: CONTRACEPTION
     Dates: start: 20161201, end: 20161221

REACTIONS (2)
  - Device dislocation [Recovered/Resolved]
  - Menorrhagia [Recovered/Resolved]

NARRATIVE: CASE EVENT DATE: 20161212
